FAERS Safety Report 18467524 (Version 2)
Quarter: 2021Q1

REPORT INFORMATION
  Report Type: Spontaneous
  Country: IT (occurrence: IT)
  Receive Date: 20201105
  Receipt Date: 20210319
  Transmission Date: 20210419
  Serious: Yes (Other)
  Sender: FDA-Public Use
  Company Number: IT-BRISTOL-MYERS SQUIBB COMPANY-BMS-2020-089490

PATIENT
  Sex: Female

DRUGS (7)
  1. IMATINIB. [Suspect]
     Active Substance: IMATINIB MESYLATE
     Dosage: UNK
     Route: 065
     Dates: start: 201910
  2. DASATINIB. [Suspect]
     Active Substance: DASATINIB
     Indication: CHRONIC MYELOID LEUKAEMIA
     Dosage: 70 MILLIGRAM, BID
     Route: 065
     Dates: start: 200504
  3. DASATINIB. [Suspect]
     Active Substance: DASATINIB
     Dosage: 100 MILLIGRAM, QD
     Route: 065
     Dates: start: 200909
  4. DASATINIB. [Suspect]
     Active Substance: DASATINIB
     Dosage: 80 MILLIGRAM, QD
     Route: 065
     Dates: start: 201403, end: 201910
  5. IMATINIB. [Suspect]
     Active Substance: IMATINIB MESYLATE
     Indication: CHRONIC MYELOID LEUKAEMIA
     Dosage: UNK
     Route: 065
     Dates: start: 200203
  6. DASATINIB. [Suspect]
     Active Substance: DASATINIB
     Dosage: 20 MILLIGRAM, BID
     Route: 065
  7. IMATINIB. [Suspect]
     Active Substance: IMATINIB MESYLATE
     Dosage: 600 MG, QD
     Route: 065
     Dates: end: 200503

REACTIONS (10)
  - Haematotoxicity [Unknown]
  - Infection [Unknown]
  - Off label use [Unknown]
  - Cytogenetic analysis abnormal [Unknown]
  - Drug resistance [Unknown]
  - Toxicity to various agents [Unknown]
  - Drug ineffective [Unknown]
  - Pleural effusion [Unknown]
  - Loss of therapeutic response [Unknown]
  - Dyspnoea [Unknown]

NARRATIVE: CASE EVENT DATE: 200404
